FAERS Safety Report 19375574 (Version 2)
Quarter: 2021Q4

REPORT INFORMATION
  Report Type: Report from Study
  Country: KR (occurrence: KR)
  Receive Date: 20210605
  Receipt Date: 20211122
  Transmission Date: 20220303
  Serious: Yes (Hospitalization, Other)
  Sender: FDA-Public Use
  Company Number: KR-KYOWAKIRIN-2021AKK008956

PATIENT
  Age: 63 Year
  Sex: Female

DRUGS (88)
  1. FILGRASTIM [Suspect]
     Active Substance: FILGRASTIM
     Indication: Product used for unknown indication
     Dosage: UNK, QD (1)
     Route: 065
     Dates: start: 20100201, end: 20100210
  2. FILGRASTIM [Suspect]
     Active Substance: FILGRASTIM
     Dosage: UNK, QD (1)
     Route: 065
     Dates: start: 20100211, end: 20100310
  3. FILGRASTIM [Suspect]
     Active Substance: FILGRASTIM
     Dosage: UNK, QD (1)
     Route: 065
     Dates: start: 20100329, end: 20100330
  4. FILGRASTIM [Suspect]
     Active Substance: FILGRASTIM
     Dosage: UNK, QD (1)
     Route: 065
     Dates: start: 20100401, end: 20100403
  5. FILGRASTIM [Suspect]
     Active Substance: FILGRASTIM
     Dosage: UNK, QD (1)
     Route: 065
     Dates: start: 20100405, end: 20100405
  6. FILGRASTIM [Suspect]
     Active Substance: FILGRASTIM
     Dosage: UNK, QD (1)
     Route: 065
     Dates: start: 20100410, end: 20100412
  7. FILGRASTIM [Suspect]
     Active Substance: FILGRASTIM
     Dosage: UNK, QD (1)
     Route: 065
     Dates: start: 20100420, end: 20100501
  8. FILGRASTIM [Suspect]
     Active Substance: FILGRASTIM
     Dosage: UNK, QD (1)
     Route: 065
     Dates: start: 20100519, end: 20100519
  9. FILGRASTIM [Suspect]
     Active Substance: FILGRASTIM
     Dosage: UNK, QD (1)
     Route: 065
     Dates: start: 20100525, end: 20100525
  10. FILGRASTIM [Suspect]
     Active Substance: FILGRASTIM
     Dosage: UNK, QD (1)
     Route: 065
     Dates: start: 20100617, end: 20100619
  11. FILGRASTIM [Suspect]
     Active Substance: FILGRASTIM
     Dosage: UNK, QD (1)
     Route: 065
     Dates: start: 20100621, end: 20100626
  12. FILGRASTIM [Suspect]
     Active Substance: FILGRASTIM
     Dosage: UNK, QD (1)
     Route: 065
     Dates: start: 20100628, end: 20100703
  13. FILGRASTIM [Suspect]
     Active Substance: FILGRASTIM
     Dosage: UNK, QD (1)
     Route: 065
     Dates: start: 20100705, end: 20150726
  14. FILGRASTIM [Suspect]
     Active Substance: FILGRASTIM
     Dosage: UNK, QD (1)
     Route: 065
     Dates: start: 20100729, end: 20100729
  15. FILGRASTIM [Suspect]
     Active Substance: FILGRASTIM
     Dosage: UNK, QD (1)
     Route: 065
     Dates: start: 20100804, end: 20100804
  16. FILGRASTIM [Suspect]
     Active Substance: FILGRASTIM
     Dosage: UNK, QD (1)
     Route: 065
     Dates: start: 20100809, end: 20100809
  17. FILGRASTIM [Suspect]
     Active Substance: FILGRASTIM
     Dosage: UNK, QD (1)
     Route: 065
     Dates: start: 20100830, end: 20100904
  18. FILGRASTIM [Suspect]
     Active Substance: FILGRASTIM
     Dosage: UNK, QD (1)
     Route: 065
     Dates: start: 20100906, end: 20100925
  19. FILGRASTIM [Suspect]
     Active Substance: FILGRASTIM
     Dosage: UNK, QD (1)
     Route: 065
     Dates: start: 20100927, end: 20101001
  20. FILGRASTIM [Suspect]
     Active Substance: FILGRASTIM
     Dosage: UNK, QD (1)
     Route: 065
     Dates: start: 20101004, end: 20101006
  21. FILGRASTIM [Suspect]
     Active Substance: FILGRASTIM
     Dosage: UNK, QD (1)
     Route: 065
     Dates: start: 20101011, end: 20101011
  22. FILGRASTIM [Suspect]
     Active Substance: FILGRASTIM
     Dosage: UNK, QD (1)
     Route: 065
     Dates: start: 20101124, end: 20101124
  23. FILGRASTIM [Suspect]
     Active Substance: FILGRASTIM
     Dosage: UNK, QD (1)
     Route: 065
     Dates: start: 20201129, end: 20201129
  24. FILGRASTIM [Suspect]
     Active Substance: FILGRASTIM
     Dosage: UNK, QD (1)
     Route: 065
     Dates: start: 20101202, end: 20101224
  25. FILGRASTIM [Suspect]
     Active Substance: FILGRASTIM
     Dosage: UNK, QD (1)
     Route: 065
     Dates: start: 20101227, end: 20101231
  26. FILGRASTIM [Suspect]
     Active Substance: FILGRASTIM
     Dosage: UNK, QD (1)
     Route: 065
     Dates: start: 20110103, end: 20110107
  27. FILGRASTIM [Suspect]
     Active Substance: FILGRASTIM
     Dosage: UNK, QD (1)
     Route: 065
     Dates: start: 20110110, end: 20110111
  28. FILGRASTIM [Suspect]
     Active Substance: FILGRASTIM
     Dosage: UNK, QD (1)
     Route: 065
     Dates: start: 20110114, end: 20110114
  29. FILGRASTIM [Suspect]
     Active Substance: FILGRASTIM
     Dosage: UNK, QD (1)
     Route: 065
     Dates: start: 20110117, end: 20110117
  30. FILGRASTIM [Suspect]
     Active Substance: FILGRASTIM
     Dosage: UNK, QD (1)
     Route: 065
     Dates: start: 20110120, end: 20110120
  31. FILGRASTIM [Suspect]
     Active Substance: FILGRASTIM
     Dosage: UNK, QD (1)
     Route: 065
     Dates: start: 20110124, end: 20110124
  32. FILGRASTIM [Suspect]
     Active Substance: FILGRASTIM
     Dosage: UNK, QD (1)
     Route: 065
     Dates: start: 20110214, end: 20110214
  33. FILGRASTIM [Suspect]
     Active Substance: FILGRASTIM
     Dosage: UNK, QD (1)
     Route: 065
     Dates: start: 20110217, end: 20110218
  34. FILGRASTIM [Suspect]
     Active Substance: FILGRASTIM
     Dosage: UNK, QD (1)
     Route: 065
     Dates: start: 20110221, end: 20110226
  35. FILGRASTIM [Suspect]
     Active Substance: FILGRASTIM
     Dosage: UNK, QD (1)
     Route: 065
     Dates: start: 20110228, end: 20110228
  36. FILGRASTIM [Suspect]
     Active Substance: FILGRASTIM
     Dosage: UNK, QD (1)
     Route: 065
     Dates: start: 20110302, end: 20110314
  37. DECITABINE [Concomitant]
     Active Substance: DECITABINE
     Indication: Product used for unknown indication
     Dosage: UNK UNK, QD (20)
     Dates: start: 20100125, end: 20100129
  38. DECITABINE [Concomitant]
     Active Substance: DECITABINE
     Dosage: UNK UNK, QD (20)
     Dates: start: 20100322, end: 20100326
  39. DECITABINE [Concomitant]
     Active Substance: DECITABINE
     Dosage: UNK UNK, QD (20)
     Dates: start: 20100607, end: 20100611
  40. DECITABINE [Concomitant]
     Active Substance: DECITABINE
     Dosage: UNK UNK, QD (20)
     Dates: start: 20100816, end: 20100820
  41. DECITABINE [Concomitant]
     Active Substance: DECITABINE
     Dosage: UNK UNK, QD (20)
     Dates: start: 20101117, end: 20101121
  42. DECITABINE [Concomitant]
     Active Substance: DECITABINE
     Dosage: UNK UNK, QD (20)
     Dates: start: 20110207, end: 20110211
  43. ASPIRIN [Concomitant]
     Active Substance: ASPIRIN
     Indication: Product used for unknown indication
     Dosage: 100 MILLIGRAM, QD
     Dates: end: 20100202
  44. ACYCLOVIR [Concomitant]
     Active Substance: ACYCLOVIR
     Indication: Product used for unknown indication
     Dosage: 200 MILLIGRAM, QD
     Dates: start: 20100413, end: 20100418
  45. AMITRIPTYLINE [Concomitant]
     Active Substance: AMITRIPTYLINE
     Indication: Product used for unknown indication
     Dosage: 10 MILLIGRAM, QD
     Dates: end: 20100223
  46. AMITRIPTYLINE [Concomitant]
     Active Substance: AMITRIPTYLINE
     Dosage: 10 MILLIGRAM, QD
     Dates: start: 20100526, end: 20101025
  47. CAROVERINE [Concomitant]
     Indication: Product used for unknown indication
     Dosage: 40 MILLIGRAM, QD
     Dates: start: 20100721, end: 20100721
  48. CEFAZOLIN [Concomitant]
     Active Substance: CEFAZOLIN
     Indication: Product used for unknown indication
     Dosage: UNK, QD (1)
     Dates: start: 20100911, end: 20100917
  49. CEFEPIME [Concomitant]
     Active Substance: CEFEPIME HYDROCHLORIDE
     Indication: Product used for unknown indication
     Dosage: UNK, QD (2)
     Dates: start: 20100202, end: 20100211
  50. CEFEPIME [Concomitant]
     Active Substance: CEFEPIME HYDROCHLORIDE
     Dosage: UNK, QD (2)
     Dates: start: 20100908, end: 20100911
  51. CEFEPIME [Concomitant]
     Active Substance: CEFEPIME HYDROCHLORIDE
     Dosage: UNK, QD (2)
     Dates: start: 20100410, end: 20100412
  52. CEFEPIME [Concomitant]
     Active Substance: CEFEPIME HYDROCHLORIDE
     Dosage: UNK, QD (2)
     Dates: start: 20100706, end: 20100709
  53. CEFEPIME [Concomitant]
     Active Substance: CEFEPIME HYDROCHLORIDE
     Dosage: UNK, QD (2)
     Dates: start: 20100223, end: 20100302
  54. CIPROFLOXACIN [Concomitant]
     Active Substance: CIPROFLOXACIN
     Indication: Product used for unknown indication
     Dosage: 200 MILLIGRAM, QD
     Dates: start: 20101213, end: 20101216
  55. CIPROFLOXACIN [Concomitant]
     Active Substance: CIPROFLOXACIN
     Dosage: 250 MILLIGRAM, QD
     Dates: start: 20100624, end: 20100630
  56. CIPROFLOXACIN [Concomitant]
     Active Substance: CIPROFLOXACIN
     Dosage: 250 MILLIGRAM, QD
     Dates: start: 20100705, end: 20100706
  57. CIPROFLOXACIN [Concomitant]
     Active Substance: CIPROFLOXACIN
     Dosage: 400 MILLIGRAM, QD
     Dates: start: 20101203, end: 20101206
  58. CIPROFLOXACIN [Concomitant]
     Active Substance: CIPROFLOXACIN
     Dosage: 400 MILLIGRAM, QD
     Dates: start: 20101207, end: 20101212
  59. CIPROFLOXACIN [Concomitant]
     Active Substance: CIPROFLOXACIN
     Dosage: 500 MILLIGRAM, QD
     Dates: start: 20100427, end: 20100501
  60. CIPROFLOXACIN [Concomitant]
     Active Substance: CIPROFLOXACIN
     Dosage: 200 MILLIGRAM, QD
     Dates: start: 20100413, end: 20100426
  61. ETODOLAC [Concomitant]
     Active Substance: ETODOLAC
     Indication: Product used for unknown indication
     Dosage: UNK, QD (1)
     Dates: start: 20100303, end: 20100304
  62. HYDROCHLOROTHIAZIDE [Concomitant]
     Active Substance: HYDROCHLOROTHIAZIDE
     Indication: Product used for unknown indication
     Dosage: 12.5 MILLIGRAM, QD
     Dates: end: 20100526
  63. HYDROXYZINE [Concomitant]
     Active Substance: HYDROXYZINE HYDROCHLORIDE
     Indication: Product used for unknown indication
     Dosage: 10 MILLIGRAM, QD
     Dates: start: 20100221, end: 20100227
  64. ITRACONAZOLE [Concomitant]
     Active Substance: ITRACONAZOLE
     Indication: Product used for unknown indication
     Dosage: UNK, QD (15)
     Dates: end: 20100630
  65. ITRACONAZOLE [Concomitant]
     Active Substance: ITRACONAZOLE
     Dosage: UNK, QD (15)
     Dates: start: 20100705, end: 20100713
  66. ITRACONAZOLE [Concomitant]
     Active Substance: ITRACONAZOLE
     Dosage: 200 MILLIGRAM, QD
     Dates: start: 20100219, end: 20100223
  67. LEVOFLOXACIN [Concomitant]
     Active Substance: LEVOFLOXACIN
     Indication: Product used for unknown indication
     Dosage: 750 MILLIGRAM, QD
     Dates: start: 20110305, end: 20110318
  68. LEVOFLOXACIN [Concomitant]
     Active Substance: LEVOFLOXACIN
     Dosage: 750 MILLIGRAM, QD
     Dates: start: 20100301, end: 20100306
  69. MEQUITAZINE [Concomitant]
     Active Substance: MEQUITAZINE
     Indication: Product used for unknown indication
     Dosage: 5 MILLIGRAM, QD
     Dates: start: 20100221, end: 20100227
  70. MEROPENEM [Concomitant]
     Active Substance: MEROPENEM
     Indication: Product used for unknown indication
     Dosage: 500 MILLIGRAM, QD
     Dates: start: 20100212, end: 20100216
  71. MEROPENEM [Concomitant]
     Active Substance: MEROPENEM
     Dosage: 500 MILLIGRAM, QD
     Dates: start: 20100219, end: 20100222
  72. MEROPENEM [Concomitant]
     Active Substance: MEROPENEM
     Dosage: 500 MILLIGRAM, QD
     Dates: start: 20100721, end: 20100727
  73. MEROPENEM [Concomitant]
     Active Substance: MEROPENEM
     Dosage: 500 MILLIGRAM, QD
     Dates: start: 20100709, end: 20100718
  74. METOCLOPRAMIDE [Concomitant]
     Active Substance: METOCLOPRAMIDE
     Indication: Product used for unknown indication
     Dosage: 10 MILLIGRAM, QD
     Dates: start: 20100410, end: 20100414
  75. MINOCYCLINE [Concomitant]
     Active Substance: MINOCYCLINE HYDROCHLORIDE
     Indication: Product used for unknown indication
     Dosage: UNK, QD (5)
     Dates: start: 20100217, end: 20100217
  76. PIPERACILLIN [Concomitant]
     Active Substance: PIPERACILLIN
     Indication: Product used for unknown indication
     Dosage: UNK, QD (4.5)
     Dates: start: 20100217, end: 20100218
  77. PIPERACILLIN [Concomitant]
     Active Substance: PIPERACILLIN
     Dosage: UNK, QD (4.5)
     Dates: start: 20100413, end: 20100426
  78. PRAVASTATIN [Concomitant]
     Active Substance: PRAVASTATIN
     Indication: Product used for unknown indication
     Dosage: 10 MILLIGRAM, QD
     Dates: end: 20100210
  79. PRAVASTATIN [Concomitant]
     Active Substance: PRAVASTATIN
     Dosage: 10 MILLIGRAM, QD
     Dates: start: 20100526, end: 20101025
  80. PREDNISOLONE [Concomitant]
     Active Substance: PREDNISOLONE
     Indication: Product used for unknown indication
     Dosage: UNK, QD (1)
     Dates: start: 20100303, end: 20100306
  81. RANITIDINE [Concomitant]
     Active Substance: RANITIDINE
     Indication: Product used for unknown indication
     Dosage: 50 MILLIGRAM, QD
     Dates: start: 20100721, end: 20100725
  82. SUCRALFATE [Concomitant]
     Active Substance: SUCRALFATE
     Indication: Product used for unknown indication
     Dosage: UNK, QD (12)
     Dates: start: 20100722, end: 20100725
  83. SULFAMETHOXAZOLE AND TRIMETHOPRIM [Concomitant]
     Active Substance: SULFAMETHOXAZOLE\TRIMETHOPRIM
     Indication: Product used for unknown indication
     Dosage: 1 DOSAGE FORM, QD
     Dates: start: 20100624, end: 20100630
  84. SULFAMETHOXAZOLE AND TRIMETHOPRIM [Concomitant]
     Active Substance: SULFAMETHOXAZOLE\TRIMETHOPRIM
     Dosage: 1 DOSAGE FORM, QD
     Dates: start: 20100705, end: 20100706
  85. TIROPRAMIDE [Concomitant]
     Active Substance: TIROPRAMIDE
     Indication: Product used for unknown indication
     Dosage: 50 MILLIGRAM, QD
     Dates: start: 20100720, end: 20100720
  86. VANCOMYCIN [Concomitant]
     Active Substance: VANCOMYCIN
     Indication: Product used for unknown indication
     Dosage: UNK, QD (1)
     Dates: start: 20100212, end: 20100216
  87. VANCOMYCIN [Concomitant]
     Active Substance: VANCOMYCIN
     Dosage: UNK, QD (1)
     Dates: start: 20100219, end: 20100222
  88. VORICONAZOLE [Concomitant]
     Active Substance: VORICONAZOLE
     Indication: Product used for unknown indication
     Dosage: 240 MILLIGRAM, QD
     Dates: start: 20100224, end: 20100308

REACTIONS (8)
  - Epigastric discomfort [Recovered/Resolved]
  - Pancytopenia [Recovered/Resolved]
  - Febrile neutropenia [Recovered/Resolved]
  - Febrile neutropenia [Recovered/Resolved]
  - Urinary tract infection [Recovered/Resolved]
  - Sepsis [Recovered/Resolved]
  - Sepsis [Recovered/Resolved]
  - Sepsis [Recovered/Resolved]

NARRATIVE: CASE EVENT DATE: 20100202
